FAERS Safety Report 4517793-5 (Version None)
Quarter: 2004Q4

REPORT INFORMATION
  Report Type: 
  Country: None (occurrence: None)
  Receive Date: 20041203
  Receipt Date: 20041126
  Transmission Date: 20050328
  Serious: Yes (Other)
  Sender: FDA-Public Use
  Company Number: DE-ROCHE-387337

PATIENT
  Age: 1 Hour
  Sex: Male
  Weight: 3 kg

DRUGS (1)
  1. XENICAL [Suspect]
     Indication: OBESITY
     Dates: start: 20040121, end: 20040218

REACTIONS (4)
  - CONGENITAL ATRIAL SEPTAL DEFECT [None]
  - DRUG EXPOSURE DURING PREGNANCY [None]
  - PREMATURE LABOUR [None]
  - TRANSIENT TACHYPNOEA OF THE NEWBORN [None]
